FAERS Safety Report 7117396-2 (Version None)
Quarter: 2010Q4

REPORT INFORMATION
  Report Type: 
  Country: None (occurrence: None)
  Receive Date: 20101122
  Receipt Date: 20101025
  Transmission Date: 20110411
  Serious: Yes (Other)
  Sender: FDA-Public Use
  Company Number: PHHY2010CH74239

PATIENT
  Sex: Female

DRUGS (1)
  1. DESFERRIOXAMINE MESYLATE [Suspect]
     Dosage: UNK

REACTIONS (3)
  - DRUG EXPOSURE DURING PREGNANCY [None]
  - NORMAL NEWBORN [None]
  - PRE-ECLAMPSIA [None]
